FAERS Safety Report 7830110-8 (Version None)
Quarter: 2011Q4

REPORT INFORMATION
  Report Type: 
  Country: None (occurrence: None)
  Receive Date: 20111021
  Receipt Date: 20111010
  Transmission Date: 20120403
  Serious: Yes (Hospitalization)
  Sender: FDA-Public Use
  Company Number: US-JNJFOC-20100302111

PATIENT
  Sex: Male
  Weight: 48.8 kg

DRUGS (4)
  1. PREDNISONE [Concomitant]
  2. METHOTREXATE [Concomitant]
  3. INFLIXIMAB [Suspect]
     Route: 042
     Dates: start: 20110207
  4. INFLIXIMAB [Suspect]
     Indication: INFLAMMATORY BOWEL DISEASE
     Route: 042
     Dates: start: 20060317

REACTIONS (1)
  - RECTAL ABSCESS [None]
